FAERS Safety Report 12822873 (Version 2)
Quarter: 2016Q4

REPORT INFORMATION
  Report Type: Spontaneous
  Country: AU (occurrence: AU)
  Receive Date: 20161006
  Receipt Date: 20161010
  Transmission Date: 20170207
  Serious: Yes (Hospitalization, Other)
  Sender: FDA-Public Use
  Company Number: AU-PFIZER INC-2016413734

PATIENT
  Sex: Female

DRUGS (8)
  1. TARGIN [Suspect]
     Active Substance: NALOXONE HYDROCHLORIDE\OXYCODONE HYDROCHLORIDE
     Dosage: UNK
     Dates: start: 201608
  2. ASPIRIN. [Concomitant]
     Active Substance: ASPIRIN
     Dosage: UNK
  3. LYRICA [Suspect]
     Active Substance: PREGABALIN
     Indication: BACK PAIN
     Dosage: 375 MG, DAILY (2X75MG) 150MG MANE; (3X75MG) 225MG NOCTE
  4. LYRICA [Suspect]
     Active Substance: PREGABALIN
     Dosage: (3X75MG) 225 MG, MORNING AND NIGHT
  5. PANADOL /00020001/ [Concomitant]
     Dosage: 2 MANE WITH LYRICA AND TARGIN AND 2 AT
  6. METFORMIN [Concomitant]
     Active Substance: METFORMIN HYDROCHLORIDE
     Dosage: UNK
  7. ZOLOFT [Concomitant]
     Active Substance: SERTRALINE HYDROCHLORIDE
     Dosage: UNK
  8. LYRICA [Suspect]
     Active Substance: PREGABALIN
     Dosage: 375 MG DAILY (2X75MG AND 1X25MG IN THE MORNING, 2X75MG AND 2X25MG NOCTE)
     Dates: start: 201608

REACTIONS (7)
  - Drug effect incomplete [Not Recovered/Not Resolved]
  - Nerve injury [Unknown]
  - Bite [Recovered/Resolved]
  - Sleep disorder [Not Recovered/Not Resolved]
  - Fatigue [Not Recovered/Not Resolved]
  - Dry throat [Not Recovered/Not Resolved]
  - Dry mouth [Not Recovered/Not Resolved]

NARRATIVE: CASE EVENT DATE: 201608
